FAERS Safety Report 14366641 (Version 1)
Quarter: 2018Q1

REPORT INFORMATION
  Report Type: Spontaneous
  Country: US (occurrence: US)
  Receive Date: 20180109
  Receipt Date: 20180109
  Transmission Date: 20180509
  Serious: Yes (Other)
  Sender: FDA-Public Use
  Company Number: US-BRACCO-2017US06029

PATIENT
  Age: 72 Year
  Sex: Female

DRUGS (3)
  1. METOPROLOL. [Concomitant]
     Active Substance: METOPROLOL
     Dosage: UNK
  2. PROHANCE [Suspect]
     Active Substance: GADOTERIDOL
     Indication: NUCLEAR MAGNETIC RESONANCE IMAGING HEART
     Dosage: UNK UNK, SINGLE
     Dates: start: 20170918, end: 20170918
  3. LISINOPRIL. [Concomitant]
     Active Substance: LISINOPRIL
     Dosage: UNK

REACTIONS (5)
  - Neurogenic bladder [Not Recovered/Not Resolved]
  - Blindness [Unknown]
  - Pain in extremity [Not Recovered/Not Resolved]
  - Hypersensitivity [Unknown]
  - Anal incontinence [Not Recovered/Not Resolved]

NARRATIVE: CASE EVENT DATE: 2017
